FAERS Safety Report 4933830-8 (Version None)
Quarter: 2006Q1

REPORT INFORMATION
  Report Type: 
  Country: None (occurrence: None)
  Receive Date: 20060306
  Receipt Date: 20050328
  Transmission Date: 20060701
  Serious: Yes (Hospitalization)
  Sender: FDA-Public Use
  Company Number: AU-MERCK-0503AUS00176

PATIENT
  Age: 68 Year
  Sex: Male

DRUGS (5)
  1. VIOXX [Suspect]
     Route: 048
     Dates: end: 20031029
  2. LISINOPRIL [Suspect]
     Route: 048
     Dates: end: 20031029
  3. AMLODIPINE BESYLATE [Suspect]
     Route: 048
     Dates: end: 20030311
  4. RADIOGRAPHIC CONTRAST MEDIUM (UNSPECIFIED) [Suspect]
     Route: 065
     Dates: start: 20031027
  5. METFORMIN HYDROCHLORIDE [Suspect]
     Route: 048
     Dates: end: 20031029

REACTIONS (2)
  - LACTIC ACIDOSIS [None]
  - RENAL FAILURE [None]
